FAERS Safety Report 4519850-6 (Version None)
Quarter: 2004Q4

REPORT INFORMATION
  Report Type: 
  Country: None (occurrence: None)
  Receive Date: 20041207
  Receipt Date: 20041026
  Transmission Date: 20050328
  Serious: Yes (Other)
  Sender: FDA-Public Use
  Company Number: PHEH2004US11567

PATIENT
  Age: 44 Year
  Sex: Male

DRUGS (2)
  1. VALIUM [Concomitant]
     Dosage: 5 MG, Q6H
     Route: 048
     Dates: start: 20040623
  2. CLOZARIL [Suspect]
     Indication: SCHIZOPHRENIA
     Dosage: 800 MG, QD
     Route: 048
     Dates: start: 19971119

REACTIONS (5)
  - GASTRIC CANCER [None]
  - LEUKOPENIA [None]
  - LYMPHOMA [None]
  - SURGERY [None]
  - WHITE BLOOD CELL COUNT DECREASED [None]
